FAERS Safety Report 10064861 (Version 1)
Quarter: 2014Q2

REPORT INFORMATION
  Report Type: Spontaneous
  Country: US (occurrence: None)
  Receive Date: 20140407
  Receipt Date: 20140407
  Transmission Date: 20141212
  Serious: No
  Sender: FDA-Public Use
  Company Number: None

PATIENT
  Age: 57 Year
  Sex: Female
  Weight: 90.6 kg

DRUGS (1)
  1. LINAGLIPTIN [Suspect]
     Route: 048
     Dates: start: 20131216, end: 20140326

REACTIONS (5)
  - Fatigue [None]
  - Tremor [None]
  - Dizziness [None]
  - Feeling jittery [None]
  - Impaired work ability [None]
